FAERS Safety Report 4823451-X (Version None)
Quarter: 2005Q4

REPORT INFORMATION
  Report Type: 
  Country: None (occurrence: None)
  Receive Date: 20051107
  Receipt Date: 20051024
  Transmission Date: 20060501
  Serious: Yes (Other)
  Sender: FDA-Public Use
  Company Number: 2005120456

PATIENT
  Age: 45 Year
  Sex: Female

DRUGS (1)
  1. BENADRYL [Suspect]
     Indication: DERMATITIS CONTACT
     Dosage: 3 TIMES A DAY, TOPICAL
     Route: 061
     Dates: start: 20050820, end: 20050822

REACTIONS (3)
  - DRUG HYPERSENSITIVITY [None]
  - FOOD ALLERGY [None]
  - OVERDOSE [None]
